FAERS Safety Report 19177245 (Version 4)
Quarter: 2021Q2

REPORT INFORMATION
  Report Type: Spontaneous
  Country: US (occurrence: US)
  Receive Date: 20210425
  Receipt Date: 20210510
  Transmission Date: 20210717
  Serious: No
  Sender: FDA-Public Use
  Company Number: US-JNJFOC-20210438152

PATIENT
  Sex: Male

DRUGS (4)
  1. CORTIZONE [HYDROCORTISONE] [Concomitant]
     Active Substance: HYDROCORTISONE
     Indication: INFLAMMATION
  2. RISPERDAL [Suspect]
     Active Substance: RISPERIDONE
     Indication: PRODUCT USED FOR UNKNOWN INDICATION
     Route: 048
     Dates: start: 20040121
  3. HALDOL [Suspect]
     Active Substance: HALOPERIDOL
     Indication: PRODUCT USED FOR UNKNOWN INDICATION
     Route: 065
  4. CORTIZONE [HYDROCORTISONE] [Concomitant]
     Active Substance: HYDROCORTISONE
     Indication: INFECTION
     Route: 065
     Dates: start: 19980828

REACTIONS (10)
  - Acne [Not Recovered/Not Resolved]
  - Rhinorrhoea [Not Recovered/Not Resolved]
  - Synovial cyst [Not Recovered/Not Resolved]
  - Skin papilloma [Not Recovered/Not Resolved]
  - Pharyngitis [Not Recovered/Not Resolved]
  - Localised infection [Not Recovered/Not Resolved]
  - Rash [Not Recovered/Not Resolved]
  - Tinnitus [Unknown]
  - Gastritis [Not Recovered/Not Resolved]
  - Dandruff [Not Recovered/Not Resolved]
